FAERS Safety Report 16481039 (Version 4)
Quarter: 2019Q3

REPORT INFORMATION
  Report Type: Spontaneous
  Country: BG (occurrence: BG)
  Receive Date: 20190626
  Receipt Date: 20190708
  Transmission Date: 20191004
  Serious: Yes (Hospitalization)
  Sender: FDA-Public Use
  Company Number: PHHY2019BG143928

PATIENT
  Age: 68 Year
  Sex: Male

DRUGS (4)
  1. L-THYROXIN [Concomitant]
     Active Substance: LEVOTHYROXINE SODIUM
     Indication: PRODUCT USED FOR UNKNOWN INDICATION
     Dosage: 175 UG, UNK
     Route: 065
  2. OLMESARTAN MEDOXOMIL+HYDROCHLOROTHIAZIDE [Suspect]
     Active Substance: HYDROCHLOROTHIAZIDE\OLMESARTAN MEDOXOMIL
     Indication: HYPERTENSION
     Route: 065
  3. AMLODIPINE [Suspect]
     Active Substance: AMLODIPINE BESYLATE
     Indication: HYPERTENSION
     Route: 065
  4. METFORMIN [Concomitant]
     Active Substance: METFORMIN HYDROCHLORIDE
     Indication: TYPE 2 DIABETES MELLITUS
     Route: 065

REACTIONS (16)
  - Swelling of eyelid [Recovering/Resolving]
  - Breath sounds abnormal [Recovering/Resolving]
  - Polymyositis [Recovering/Resolving]
  - Hypoalbuminaemia [Recovering/Resolving]
  - Hypoproteinaemia [Recovering/Resolving]
  - Peripheral swelling [Recovering/Resolving]
  - Swelling [Recovering/Resolving]
  - Abdominal tenderness [Recovering/Resolving]
  - Haemoglobin decreased [Recovering/Resolving]
  - Muscular weakness [Recovering/Resolving]
  - Myalgia [Recovering/Resolving]
  - Hepatic steatosis [Unknown]
  - Liver tenderness [Recovering/Resolving]
  - Asthenia [Recovering/Resolving]
  - Benign prostatic hyperplasia [Unknown]
  - Blood creatine phosphokinase increased [Recovering/Resolving]
